FAERS Safety Report 10390459 (Version 2)
Quarter: 2014Q3

REPORT INFORMATION
  Report Type: Spontaneous
  Country: US (occurrence: None)
  Receive Date: 20140814
  Receipt Date: 20140904
  Transmission Date: 20150326
  Serious: Yes (Life-Threatening)
  Sender: FDA-Public Use
  Company Number: 54973 AE # 1555

PATIENT
  Age: 33 Year
  Sex: Female

DRUGS (17)
  1. TOLERODINE-TARTRATE [Concomitant]
  2. CIMETIDINE [Concomitant]
     Active Substance: CIMETIDINE
  3. BABY TEETHING [Suspect]
     Active Substance: ARABICA COFFEE BEAN\ATROPA BELLADONNA\CALCIUM PHOSPHATE\CHAMOMILE
     Indication: TEETHING
     Dosage: 3 TABLETS ONCE ORALLY
     Route: 048
  4. COMPAZINE [Concomitant]
     Active Substance: PROCHLORPERAZINE MALEATE
  5. ACTIVATED CHARCOAL [Concomitant]
     Active Substance: ACTIVATED CHARCOAL
  6. QUALITEST NORCO [Concomitant]
  7. PERCOCET [Concomitant]
     Active Substance: ACETAMINOPHEN\OXYCODONE HYDROCHLORIDE
  8. DILAUDID [Concomitant]
     Active Substance: HYDROMORPHONE HYDROCHLORIDE
  9. ALEVE [Concomitant]
     Active Substance: NAPROXEN SODIUM
  10. DEMEROL [Concomitant]
     Active Substance: MEPERIDINE HYDROCHLORIDE
  11. AMITRIPTYLINE [Concomitant]
     Active Substance: AMITRIPTYLINE
  12. PRILOSEC [Concomitant]
     Active Substance: OMEPRAZOLE MAGNESIUM
  13. HYDROCODONE ACETAMINOPHEN [Concomitant]
     Active Substance: ACETAMINOPHEN\HYDROCODONE BITARTRATE
  14. NEPROXEN [Concomitant]
  15. NICONE [Concomitant]
  16. CLARITIN [Concomitant]
     Active Substance: LORATADINE
  17. FLUNISOLIDE. [Concomitant]
     Active Substance: FLUNISOLIDE

REACTIONS (10)
  - Nausea [None]
  - Pain [None]
  - Toothache [None]
  - Heart rate increased [None]
  - Loss of consciousness [None]
  - Paraesthesia [None]
  - Hypoaesthesia [None]
  - Hypersensitivity [None]
  - Convulsion [None]
  - Tremor [None]

NARRATIVE: CASE EVENT DATE: 20140728
